FAERS Safety Report 21335655 (Version 2)
Quarter: 2022Q4

REPORT INFORMATION
  Report Type: Report from Study
  Country: NO (occurrence: None)
  Receive Date: 20220915
  Receipt Date: 20221102
  Transmission Date: 20230112
  Serious: Yes (Hospitalization)
  Sender: FDA-Public Use
  Company Number: NO-ROCHE-3174846

PATIENT
  Age: 29 Year
  Sex: Male

DRUGS (1)
  1. ATEZOLIZUMAB [Suspect]
     Active Substance: ATEZOLIZUMAB
     Indication: Neoplasm malignant
     Dosage: CYCLE 1 (1680 MG): 28/APR/2022?CYCLE 2 (1680 MG): 25/MAY/2022?CYCLE 3 (1680 MG): 23/JUN/2022?CYCLE 4
     Route: 041
     Dates: start: 20220428

REACTIONS (1)
  - Sepsis [Recovered/Resolved]

NARRATIVE: CASE EVENT DATE: 20220822
